FAERS Safety Report 4864726-8 (Version None)
Quarter: 2005Q4

REPORT INFORMATION
  Report Type: 
  Country: None (occurrence: None)
  Receive Date: 20051222
  Receipt Date: 20050218
  Transmission Date: 20060501
  Serious: Yes (Other)
  Sender: FDA-Public Use
  Company Number: US-MERCK-0502USA02985

PATIENT
  Age: 43 Year
  Sex: Female
  Weight: 75 kg

DRUGS (5)
  1. VIOXX [Suspect]
     Indication: BACK PAIN
     Route: 048
     Dates: start: 20000101, end: 20040101
  2. VIOXX [Suspect]
     Route: 048
     Dates: start: 20000101, end: 20040101
  3. VIOXX [Suspect]
     Route: 048
     Dates: start: 20000101, end: 20040101
  4. VIOXX [Suspect]
     Route: 048
     Dates: start: 20000101, end: 20040101
  5. TOPROL-XL [Concomitant]
     Route: 065

REACTIONS (3)
  - CEREBROVASCULAR ACCIDENT [None]
  - CHEST PAIN [None]
  - PRESCRIBED OVERDOSE [None]
